FAERS Safety Report 9465667 (Version 1)
Quarter: 2013Q3

REPORT INFORMATION
  Report Type: Spontaneous
  Country: US (occurrence: US)
  Receive Date: 20130820
  Receipt Date: 20130820
  Transmission Date: 20140515
  Serious: No
  Sender: FDA-Public Use
  Company Number: US-BAYER-2013-099884

PATIENT
  Age: 20 Year
  Sex: Male
  Weight: 66 kg

DRUGS (1)
  1. ALEVE TABLET [Suspect]
     Indication: TOOTHACHE
     Dosage: 1 DF, QD
     Route: 048
     Dates: start: 20130814

REACTIONS (2)
  - Migraine [Not Recovered/Not Resolved]
  - Drug ineffective [None]
